FAERS Safety Report 6016187-3 (Version None)
Quarter: 2008Q4

REPORT INFORMATION
  Report Type: 
  Country: None (occurrence: None)
  Receive Date: 20081218
  Receipt Date: 20081210
  Transmission Date: 20090506
  Serious: Yes (Hospitalization, Disabling)
  Sender: FDA-Public Use
  Company Number: 100#08#2008-06225

PATIENT
  Age: 29 Year
  Sex: Male

DRUGS (2)
  1. RISPERIDONE [Suspect]
     Indication: SCHIZOPHRENIA, PARANOID TYPE
     Dosage: 8 MG
     Dates: start: 19990501
  2. ZIPRASIDONE HCL [Concomitant]

REACTIONS (10)
  - ABNORMAL BEHAVIOUR [None]
  - DELUSION [None]
  - HEADACHE [None]
  - INSOMNIA [None]
  - PSYCHOTIC DISORDER [None]
  - RESTLESSNESS [None]
  - SEXUAL DYSFUNCTION [None]
  - THERAPY REGIMEN CHANGED [None]
  - THOUGHT BROADCASTING [None]
  - THOUGHT WITHDRAWAL [None]
